FAERS Safety Report 6987581-9 (Version None)
Quarter: 2010Q3

REPORT INFORMATION
  Report Type: 
  Country: None (occurrence: None)
  Receive Date: 20100916
  Receipt Date: 20100907
  Transmission Date: 20110219
  Serious: Yes (Other)
  Sender: FDA-Public Use
  Company Number: US-PFIZER INC-2010113682

PATIENT
  Sex: Female
  Weight: 47.619 kg

DRUGS (4)
  1. CHANTIX [Suspect]
     Indication: SMOKING CESSATION THERAPY
     Dosage: 0.5 MG, 1X/DAY
     Route: 048
     Dates: start: 20100801, end: 20100801
  2. CHANTIX [Suspect]
     Dosage: 1 MG, 2X/DAY
     Route: 048
     Dates: start: 20100801, end: 20100827
  3. METHIMAZOLE [Concomitant]
     Indication: HYPERTHYROIDISM
     Dosage: UNK
  4. ATENOLOL [Concomitant]
     Indication: HYPERTHYROIDISM
     Dosage: UNK

REACTIONS (4)
  - ABNORMAL BEHAVIOUR [None]
  - AGITATION [None]
  - MOOD ALTERED [None]
  - SCREAMING [None]
